FAERS Safety Report 9605065 (Version 2)
Quarter: 2019Q1

REPORT INFORMATION
  Report Type: Spontaneous
  Country: FR (occurrence: FR)
  Receive Date: 20131008
  Receipt Date: 20190319
  Transmission Date: 20190418
  Serious: Yes (Hospitalization, Other)
  Sender: FDA-Public Use
  Company Number: FR-PFIZER INC-2013286303

PATIENT
  Age: 81 Year
  Sex: Female
  Weight: 57.1 kg

DRUGS (8)
  1. REMICADE [Suspect]
     Active Substance: INFLIXIMAB
     Dosage: 5MG/KG EVERY 8 WEEKS
     Route: 065
     Dates: start: 20120707, end: 20130711
  2. SMECTA [Concomitant]
     Active Substance: MONTMORILLONITE
     Route: 048
  3. MODOPAR [Concomitant]
     Active Substance: BENSERAZIDE HYDROCHLORIDE\LEVODOPA
     Dosage: UNK
     Route: 048
  4. SMECTA [Concomitant]
     Active Substance: MONTMORILLONITE
     Dosage: UNK
  5. TIORFAN [Concomitant]
     Active Substance: RACECADOTRIL
     Dosage: UNK
     Route: 048
  6. DIFFU K [Concomitant]
     Active Substance: POTASSIUM CHLORIDE
     Dosage: UNK
     Route: 048
  7. SEROPLEX [Concomitant]
     Active Substance: ESCITALOPRAM OXALATE
     Dosage: UNK
     Route: 048
  8. EUPANTOL [Suspect]
     Active Substance: PANTOPRAZOLE SODIUM
     Dosage: UNK
     Route: 048
     Dates: end: 20130826

REACTIONS (1)
  - Drug reaction with eosinophilia and systemic symptoms [Recovering/Resolving]

NARRATIVE: CASE EVENT DATE: 20130712
